FAERS Safety Report 10976575 (Version 3)
Quarter: 2017Q4

REPORT INFORMATION
  Report Type: Spontaneous
  Country: CA (occurrence: CA)
  Receive Date: 20150401
  Receipt Date: 20171204
  Transmission Date: 20180320
  Serious: Yes (Hospitalization, Other)
  Sender: FDA-Public Use
  Company Number: CA-009507513-1504CAN000339

PATIENT
  Age: 58 Year
  Sex: Female
  Weight: 91.16 kg

DRUGS (9)
  1. CRESTOR [Concomitant]
     Active Substance: ROSUVASTATIN CALCIUM
     Dosage: 10 MG, QD
     Route: 048
  2. JANUVIA [Suspect]
     Active Substance: SITAGLIPTIN PHOSPHATE
     Dosage: 100 MG, ONCE A DAY (QD)
     Route: 048
     Dates: start: 20170918
  3. ALTACE [Concomitant]
     Active Substance: RAMIPRIL
     Dosage: 10 MG, QD
     Route: 048
  4. ADALAT [Concomitant]
     Active Substance: NIFEDIPINE
     Dosage: 30 MG, DAILY (XD)
     Route: 048
  5. AMITRIPTYLINE HYDROCHLORIDE. [Concomitant]
     Active Substance: AMITRIPTYLINE HYDROCHLORIDE
     Dosage: 25 MG, QD
     Route: 048
  6. JANUVIA [Suspect]
     Active Substance: SITAGLIPTIN PHOSPHATE
     Indication: TYPE 2 DIABETES MELLITUS
     Dosage: 100 MG, ONCE A DAY (QD)
     Route: 048
     Dates: start: 20130104, end: 201709
  7. HYDROCHLOROTHIAZIDE. [Concomitant]
     Active Substance: HYDROCHLOROTHIAZIDE
     Dosage: 50 MG, QD
     Route: 048
  8. ECARD HD [Concomitant]
     Active Substance: CANDESARTAN CILEXETIL\HYDROCHLOROTHIAZIDE
     Route: 048
  9. GLICLAZIDE [Concomitant]
     Active Substance: GLICLAZIDE
     Dosage: 80 MG, BID
     Route: 048

REACTIONS (12)
  - Abdominal pain [Recovered/Resolved]
  - Palpitations [Recovered/Resolved]
  - Nausea [Unknown]
  - Vomiting [Recovered/Resolved]
  - Diarrhoea [Unknown]
  - Malignant melanoma stage II [Unknown]
  - Blood pressure increased [Recovered/Resolved]
  - Lymphadenectomy [Unknown]
  - Malignant melanoma stage III [Not Recovered/Not Resolved]
  - Pancreatitis [Recovering/Resolving]
  - Pulmonary mass [Unknown]
  - Drug dose omission [Unknown]

NARRATIVE: CASE EVENT DATE: 20130327
